FAERS Safety Report 7030093-7 (Version None)
Quarter: 2010Q4

REPORT INFORMATION
  Report Type: 
  Country: None (occurrence: None)
  Receive Date: 20101006
  Receipt Date: 20100929
  Transmission Date: 20110411
  Serious: Yes (Hospitalization)
  Sender: FDA-Public Use
  Company Number: AU-NOVOPROD-315759

PATIENT
  Age: 90 Year
  Sex: Female

DRUGS (2)
  1. NOVORAPID [Suspect]
     Indication: DIABETES MELLITUS
     Dosage: THREE TIMES DAILY
  2. LANTUS [Concomitant]
     Indication: DIABETES MELLITUS
     Dosage: ONCE DAILY

REACTIONS (2)
  - FALL [None]
  - HYPOGLYCAEMIA [None]
